FAERS Safety Report 6659535-3 (Version None)
Quarter: 2010Q1

REPORT INFORMATION
  Report Type: 
  Country: None (occurrence: None)
  Receive Date: 20100330
  Receipt Date: 20100319
  Transmission Date: 20100710
  Serious: Yes (Death, Hospitalization)
  Sender: FDA-Public Use
  Company Number: PH-BAXTER-2010BH007840

PATIENT
  Age: 91 Year
  Sex: Female

DRUGS (1)
  1. DIANEAL [Suspect]
     Indication: PERITONEAL DIALYSIS
     Route: 033
     Dates: start: 20091107

REACTIONS (3)
  - CARDIAC DISORDER [None]
  - GENERALISED OEDEMA [None]
  - MULTI-ORGAN FAILURE [None]
